FAERS Safety Report 21106088 (Version 3)
Quarter: 2022Q3

REPORT INFORMATION
  Report Type: Report from Study
  Country: US (occurrence: US)
  Receive Date: 20220720
  Receipt Date: 20220915
  Transmission Date: 20221027
  Serious: Yes (Other)
  Sender: FDA-Public Use
  Company Number: US-JAZZ-2022-US-023868

PATIENT
  Age: 10 Year
  Sex: Male

DRUGS (5)
  1. EPIDIOLEX [Suspect]
     Active Substance: CANNABIDIOL
     Indication: Status epilepticus
     Dosage: 1 MILLILITER, QD IN EVENING
     Route: 048
     Dates: start: 20220617
  2. EPIDIOLEX [Suspect]
     Active Substance: CANNABIDIOL
     Dosage: 1 MILLILITER, BID, IN MORNING + EVENING
     Route: 048
  3. EPIDIOLEX [Suspect]
     Active Substance: CANNABIDIOL
     Dosage: 3 MILLILITER
     Route: 048
     Dates: start: 20220617
  4. EPIDIOLEX [Suspect]
     Active Substance: CANNABIDIOL
     Dosage: TAKE 1ML IN MORNING AND 2ML IN EVENING
     Route: 048
     Dates: start: 202207
  5. CLOBAZAM [Suspect]
     Active Substance: CLOBAZAM
     Indication: Product used for unknown indication

REACTIONS (10)
  - Seizure [Unknown]
  - Fatigue [Unknown]
  - Abnormal behaviour [Unknown]
  - Somnolence [Unknown]
  - Skin discolouration [Unknown]
  - Food refusal [Unknown]
  - Mood altered [Not Recovered/Not Resolved]
  - Lethargy [Unknown]
  - Aggression [Not Recovered/Not Resolved]
  - Off label use [Unknown]

NARRATIVE: CASE EVENT DATE: 20220601
